FAERS Safety Report 22306074 (Version 1)
Quarter: 2023Q2

REPORT INFORMATION
  Report Type: Spontaneous
  Country: US (occurrence: US)
  Receive Date: 20230511
  Receipt Date: 20230511
  Transmission Date: 20230722
  Serious: Yes (Other)
  Sender: FDA-Public Use
  Company Number: US-CADILA HEALTHCARE LIMITED-US-ZYDUS-091963

PATIENT

DRUGS (1)
  1. LENALIDOMIDE [Suspect]
     Active Substance: LENALIDOMIDE
     Indication: Breast cancer female
     Dosage: ONCE WEEKLY , DAYS 1,8,15 AND 22 EVERY 35 DAYS
     Route: 048
     Dates: start: 202303

REACTIONS (5)
  - Nephrolithiasis [Unknown]
  - Paraesthesia [Unknown]
  - Burning sensation [Unknown]
  - Peripheral swelling [Unknown]
  - Product use in unapproved indication [Not Recovered/Not Resolved]

NARRATIVE: CASE EVENT DATE: 20230301
